FAERS Safety Report 11792615 (Version 2)
Quarter: 2015Q4

REPORT INFORMATION
  Report Type: Spontaneous
  Country: VE (occurrence: VE)
  Receive Date: 20151202
  Receipt Date: 20151204
  Transmission Date: 20160305
  Serious: Yes (Life-Threatening, Hospitalization)
  Sender: FDA-Public Use
  Company Number: VE-009507513-1512VEN000178

PATIENT
  Age: 76 Year
  Sex: Male
  Weight: 95 kg

DRUGS (4)
  1. COAPROVEL [Concomitant]
     Active Substance: HYDROCHLOROTHIAZIDE\IRBESARTAN
     Indication: HYPERTENSION
     Dosage: UNK
     Route: 048
  2. LANTUS [Concomitant]
     Active Substance: INSULIN GLARGINE
     Indication: DIABETES MELLITUS
     Dosage: 58 UNITS AM, 38 UNITS PM. TOTALY DAILY DOSE:96 UNITS
     Route: 058
  3. ASPIRIN. [Concomitant]
     Active Substance: ASPIRIN
     Indication: CARDIOVASCULAR EVENT PROPHYLAXIS
     Route: 048
  4. JANUMET [Suspect]
     Active Substance: METFORMIN HYDROCHLORIDE\SITAGLIPTIN PHOSPHATE
     Indication: TYPE 2 DIABETES MELLITUS
     Dosage: 100/1700MG BID
     Route: 048
     Dates: start: 201503, end: 201511

REACTIONS (6)
  - Syncope [Recovered/Resolved]
  - Slow speech [Recovered/Resolved]
  - Hyperglycaemia [Recovered/Resolved]
  - Paraesthesia [Recovered/Resolved]
  - Off label use [Unknown]
  - Asthenia [Recovered/Resolved]

NARRATIVE: CASE EVENT DATE: 201503
